FAERS Safety Report 7208816-3 (Version None)
Quarter: 2010Q4

REPORT INFORMATION
  Report Type: 
  Country: None (occurrence: None)
  Receive Date: 20101222
  Receipt Date: 20101209
  Transmission Date: 20110411
  Serious: Yes (Other)
  Sender: FDA-Public Use
  Company Number: 1000017805

PATIENT
  Age: 93 Year
  Sex: Female
  Weight: 86.2 kg

DRUGS (4)
  1. MEMANTINE [Suspect]
     Indication: DEMENTIA ALZHEIMER'S TYPE
     Dosage: 20 MG (20 MG, 1 IN 1 D), ORAL
     Route: 048
     Dates: start: 20100701, end: 20100929
  2. LISINOPRIL [Concomitant]
  3. TORASEMID (TORASEMIDE) (TORASEMIDE) [Concomitant]
  4. LANTUS (INSULIN GLARGINE) (INSULIN GLARGINE) [Concomitant]

REACTIONS (5)
  - DERMATITIS [None]
  - FALL [None]
  - GAIT DISTURBANCE [None]
  - OXYGEN SATURATION DECREASED [None]
  - PURPURA [None]
